FAERS Safety Report 24540821 (Version 1)
Quarter: 2024Q4

REPORT INFORMATION
  Report Type: Spontaneous
  Country: NZ (occurrence: NZ)
  Receive Date: 20241023
  Receipt Date: 20241023
  Transmission Date: 20250115
  Serious: Yes (Hospitalization)
  Sender: GLAXOSMITHKLINE
  Company Number: NZ-GSKCCFAPAC-Case-02092194_AE-89084

PATIENT

DRUGS (1)
  1. TRELEGY ELLIPTA [Suspect]
     Active Substance: FLUTICASONE FUROATE\UMECLIDINIUM BROMIDE\VILANTEROL TRIFENATATE
     Indication: Chronic obstructive pulmonary disease
     Dosage: UNK, 100/62.5/25 MCG
     Route: 055
     Dates: start: 202408

REACTIONS (5)
  - Hospitalisation [Unknown]
  - Vision blurred [Unknown]
  - Abdominal pain upper [Unknown]
  - Dry mouth [Unknown]
  - Heart rate increased [Unknown]
